FAERS Safety Report 7931511-X (Version None)
Quarter: 2011Q4

REPORT INFORMATION
  Report Type: 
  Country: None (occurrence: None)
  Receive Date: 20111121
  Receipt Date: 20111121
  Transmission Date: 20120403
  Serious: No
  Sender: FDA-Public Use
  Company Number: None

PATIENT
  Sex: Male
  Weight: 72.574 kg

DRUGS (10)
  1. DEXAMETHASONE [Concomitant]
  2. SEROQUEL [Concomitant]
  3. AVODART [Concomitant]
  4. FLUOXETINE [Concomitant]
  5. SIMVASTATIN [Concomitant]
  6. GABAPENTIN [Concomitant]
  7. DIAZEPAM [Concomitant]
  8. ZOLPIDEM [Concomitant]
  9. CLINDAMYCIN [Suspect]
     Indication: SINUSITIS
     Dosage: 300MG
     Route: 048
     Dates: start: 20111114, end: 20111118
  10. PRIMIDONE [Concomitant]

REACTIONS (2)
  - VISUAL ACUITY REDUCED [None]
  - VISION BLURRED [None]
